FAERS Safety Report 15166442 (Version 1)
Quarter: 2018Q3

REPORT INFORMATION
  Report Type: Spontaneous
  Country: US (occurrence: US)
  Receive Date: 20180621
  Receipt Date: 20180621
  Transmission Date: 20181010
  Serious: Yes (Hospitalization)
  Sender: FDA-Public Use
  Company Number: None

PATIENT
  Age: 76 Year
  Sex: Male

DRUGS (1)
  1. AMLODIPINE/BENAZEPRIL [Suspect]
     Active Substance: AMLODIPINE BESYLATE\BENAZEPRIL HYDROCHLORIDE
     Indication: HYPERTENSION
     Route: 048
     Dates: start: 20161027, end: 20180404

REACTIONS (5)
  - Rash [None]
  - Swollen tongue [None]
  - Eczema [None]
  - Angioedema [None]
  - Dermatitis bullous [None]

NARRATIVE: CASE EVENT DATE: 20180402
